FAERS Safety Report 6260929-9 (Version None)
Quarter: 2009Q3

REPORT INFORMATION
  Report Type: 
  Country: None (occurrence: None)
  Receive Date: 20090707
  Receipt Date: 20090707
  Transmission Date: 20100115
  Serious: No
  Sender: FDA-Public Use
  Company Number: None

PATIENT

DRUGS (1)
  1. CONCERTA [Suspect]
     Dosage: 36MG 2TABS DAILY PO
     Route: 048

REACTIONS (1)
  - DRUG DISPENSING ERROR [None]
